FAERS Safety Report 6035760-X (Version None)
Quarter: 2009Q1

REPORT INFORMATION
  Report Type: 
  Country: None (occurrence: None)
  Receive Date: 20090112
  Receipt Date: 20090112
  Transmission Date: 20090719
  Serious: Yes (Other)
  Sender: FDA-Public Use
  Company Number: None

PATIENT
  Age: 49 Year
  Sex: Female
  Weight: 70.3075 kg

DRUGS (2)
  1. ACIPHEX [Suspect]
     Indication: DYSPEPSIA
     Dosage: 1 DAILY PO
     Route: 048
     Dates: start: 20081101, end: 20081130
  2. ACIPHEX [Suspect]
     Indication: GASTROOESOPHAGEAL REFLUX DISEASE
     Dosage: 1 DAILY PO
     Route: 048
     Dates: start: 20081101, end: 20081130

REACTIONS (2)
  - DYSPEPSIA [None]
  - INITIAL INSOMNIA [None]
